FAERS Safety Report 6822307-0 (Version None)
Quarter: 2010Q3

REPORT INFORMATION
  Report Type: 
  Country: None (occurrence: None)
  Receive Date: 20100708
  Receipt Date: 20100607
  Transmission Date: 20110219
  Serious: No
  Sender: FDA-Public Use
  Company Number: US-BAYER-201016641BCC

PATIENT
  Age: 83 Year
  Sex: Female
  Weight: 63 kg

DRUGS (8)
  1. ALEVE (CAPLET) [Suspect]
     Indication: ARTHRITIS
     Dosage: TOTAL DAILY DOSE: 440 MG  UNIT DOSE: 220 MG
     Route: 048
     Dates: start: 20100607
  2. CALCIUM CARBONATE [Concomitant]
  3. POTASSIUM CHLORIDE [Concomitant]
  4. FOLIC ACID [Concomitant]
     Indication: ANAEMIA
  5. ASPIRIN [Concomitant]
  6. TRIAMTERENE AND HYDROCHLOROTHIAZIDE [Concomitant]
     Dosage: AS USED: 37.5/25 MG
  7. UNKNOWN BLOOD PRESSURE MEDICATION [Concomitant]
     Indication: HYPERTENSION
  8. SYNTHROID [Concomitant]

REACTIONS (2)
  - ARTHRITIS [None]
  - DIZZINESS [None]
